FAERS Safety Report 16890182 (Version 1)
Quarter: 2019Q4

REPORT INFORMATION
  Report Type: Spontaneous
  Country: FI (occurrence: FI)
  Receive Date: 20191007
  Receipt Date: 20191007
  Transmission Date: 20200122
  Serious: Yes (Life-Threatening, Other)
  Sender: FDA-Public Use
  Company Number: FI-BRISTOL-MYERS SQUIBB COMPANY-BMS-2019-095226

PATIENT
  Age: 76 Year
  Sex: Male

DRUGS (7)
  1. DIFORMIN [Concomitant]
     Active Substance: METFORMIN HYDROCHLORIDE
     Indication: TYPE 2 DIABETES MELLITUS
     Dosage: 1 GRAM DAILY
     Route: 048
     Dates: start: 20190212
  2. SERETIDE [Concomitant]
     Active Substance: FLUTICASONE PROPIONATE\SALMETEROL XINAFOATE
     Indication: ASTHMA
     Dosage: 2 DOSAGE FORM DAILY
     Route: 055
     Dates: start: 2018
  3. BISOPROACT [Concomitant]
     Active Substance: BISOPROLOL
     Indication: CORONARY ARTERY DISEASE
     Dosage: 2.5 MILLIGRAM DAILY
     Route: 048
     Dates: start: 2018
  4. ELIQUIS [Suspect]
     Active Substance: APIXABAN
     Indication: CEREBROVASCULAR ACCIDENT PROPHYLAXIS
     Dosage: 10 MILLIGRAM DAILY
     Route: 048
     Dates: start: 20180828
  5. ATORVASTATIN KRKA [Concomitant]
     Active Substance: ATORVASTATIN
     Indication: HYPERLIPIDAEMIA
     Dosage: 80 MILLIGRAM DAILY
     Route: 048
     Dates: start: 2018
  6. ENALAPRIL KRKA [Concomitant]
     Active Substance: ENALAPRIL MALEATE
     Indication: HYPERTENSION
     Dosage: 10 MILLIGRAM DAILY
     Route: 048
     Dates: start: 2018
  7. ORMOX [Concomitant]
     Indication: CORONARY ARTERY DISEASE
     Dosage: 20 MILLIGRAM DAILY
     Route: 048
     Dates: start: 2018

REACTIONS (4)
  - Basal ganglia haemorrhage [Not Recovered/Not Resolved]
  - Hemiparesis [Not Recovered/Not Resolved]
  - Fall [Not Recovered/Not Resolved]
  - Intraventricular haemorrhage [Not Recovered/Not Resolved]

NARRATIVE: CASE EVENT DATE: 20190913
